FAERS Safety Report 25331415 (Version 2)
Quarter: 2025Q2

REPORT INFORMATION
  Report Type: Spontaneous
  Country: AU (occurrence: AU)
  Receive Date: 20250519
  Receipt Date: 20250522
  Transmission Date: 20250717
  Serious: Yes (Other)
  Sender: PFIZER
  Company Number: AU-PFIZER INC-PV202500053886

PATIENT
  Age: 3 Day
  Sex: Female
  Weight: 2.25 kg

DRUGS (4)
  1. SIROLIMUS [Suspect]
     Active Substance: SIROLIMUS
     Indication: Rhabdomyoma
     Dosage: 0.25 MG, 1X/DAY VIA A NASOGASTRIC TUBE ON DAY 3 OF LIFE
  2. SIROLIMUS [Suspect]
     Active Substance: SIROLIMUS
     Dosage: 0.125 MG, 1X/DAY
  3. SIROLIMUS [Suspect]
     Active Substance: SIROLIMUS
     Dosage: 0.125 MG, 1X/DAY
  4. LEVETIRACETAM [Concomitant]
     Active Substance: LEVETIRACETAM
     Indication: Prophylaxis

REACTIONS (5)
  - Neutropenia neonatal [Unknown]
  - Off label use [Unknown]
  - Off label use [Unknown]
  - Drug effective for unapproved indication [Unknown]
  - Drug level increased [Recovered/Resolved]
